FAERS Safety Report 6567038-X (Version None)
Quarter: 2010Q1

REPORT INFORMATION
  Report Type: 
  Country: None (occurrence: None)
  Receive Date: 20100127
  Receipt Date: 20100118
  Transmission Date: 20100710
  Serious: Yes (Other)
  Sender: FDA-Public Use
  Company Number: 2010SP003957

PATIENT
  Age: 21 Year
  Sex: Female

DRUGS (3)
  1. MIRTAZAPINE [Suspect]
     Indication: DEPRESSION
     Dosage: 15 MG; PO
     Route: 048
  2. PAROXETINE HCL [Concomitant]
  3. HYDROCHLORIDE HYDRATE [Concomitant]

REACTIONS (1)
  - SUICIDAL IDEATION [None]
